FAERS Safety Report 9071253 (Version 1)
Quarter: 2013Q1

REPORT INFORMATION
  Report Type: Spontaneous
  Country: US (occurrence: US)
  Receive Date: 20130129
  Receipt Date: 20130129
  Transmission Date: 20140127
  Serious: No
  Sender: FDA-Public Use
  Company Number: US-ABBOTT-12P-163-0930113-00

PATIENT
  Age: 25 None
  Sex: Female

DRUGS (4)
  1. HUMIRA 40 MG/0.8 ML PEN [Suspect]
     Indication: CROHN^S DISEASE
     Dosage: 80MG LOADING DOSE
     Route: 058
     Dates: start: 201201, end: 201201
  2. HUMIRA 40 MG/0.8 ML PEN [Suspect]
     Dosage: 80MG LOADING DOSE
     Route: 058
     Dates: start: 20120321, end: 20120321
  3. HUMIRA 40 MG/0.8 ML PEN [Suspect]
     Dosage: 80MG LOADING DOSE
     Route: 058
     Dates: start: 20120322, end: 20120322
  4. HUMIRA 40 MG/0.8 ML PEN [Suspect]
     Dosage: 80MG LOADING DOSE
     Route: 058
     Dates: start: 20120404, end: 20120404

REACTIONS (2)
  - Acne [Not Recovered/Not Resolved]
  - Weight increased [Not Recovered/Not Resolved]
